FAERS Safety Report 4371614-2 (Version None)
Quarter: 2004Q2

REPORT INFORMATION
  Report Type: 
  Country: None (occurrence: None)
  Receive Date: 20040601
  Receipt Date: 20040521
  Transmission Date: 20050107
  Serious: Yes (Hospitalization, Other)
  Sender: FDA-Public Use
  Company Number: 2004018598

PATIENT
  Age: 84 Year
  Sex: Male
  Weight: 58.1 kg

DRUGS (7)
  1. TIKOSYN [Suspect]
     Indication: ATRIAL FIBRILLATION
     Dosage: 500 MCG (2 IN 1 D), ORAL
     Route: 048
     Dates: start: 20030101, end: 20040323
  2. DYAZIDE [Concomitant]
  3. QUINAPRIL HYDROCHLORIDE, TRIAMTERENE) [Concomitant]
  4. DIGOXIN [Concomitant]
  5. WARFARIN SODIUIM (WARFRIN SODIUIM) [Concomitant]
  6. PERI-COLACE [Concomitant]
  7. PANTOPRAZOLE (PANTOPRAZOLE) [Concomitant]

REACTIONS (13)
  - ATRIAL FIBRILLATION [None]
  - BLOOD CALCIUM DECREASED [None]
  - BLOOD UREA INCREASED [None]
  - CARDIOMYOPATHY [None]
  - CORONARY ARTERY DISEASE [None]
  - DISEASE RECURRENCE [None]
  - HAEMATEMESIS [None]
  - HYPERTENSION [None]
  - PLEURAL EFFUSION [None]
  - PNEUMONIA [None]
  - PROSTATE CANCER [None]
  - RENAL IMPAIRMENT [None]
  - WEIGHT DECREASED [None]
